FAERS Safety Report 12433346 (Version 2)
Quarter: 2016Q2

REPORT INFORMATION
  Report Type: Report from Study
  Country: CN (occurrence: CN)
  Receive Date: 20160603
  Receipt Date: 20160615
  Transmission Date: 20160815
  Serious: Yes (Hospitalization)
  Sender: FDA-Public Use
  Company Number: CN-ASTRAZENECA-2016SE57616

PATIENT
  Age: 45 Year
  Sex: Male

DRUGS (3)
  1. BYETTA [Suspect]
     Active Substance: EXENATIDE
     Indication: DIABETES MELLITUS
     Route: 058
     Dates: start: 20160414, end: 20160419
  2. NOVOLIN [Concomitant]
     Active Substance: INSULIN HUMAN
     Dosage: 30R BID (20UNITS IN THE MORNING, 18 UNITS ANOTHER TIME)
  3. BYETTA [Suspect]
     Active Substance: EXENATIDE
     Indication: DIABETES MELLITUS
     Route: 058

REACTIONS (12)
  - Cough [Recovering/Resolving]
  - Blood glucose increased [Unknown]
  - Feeling cold [Unknown]
  - Weight decreased [Unknown]
  - Malaise [Unknown]
  - Nausea [Recovered/Resolved]
  - Asphyxia [Unknown]
  - Chills [Unknown]
  - Feeling hot [Unknown]
  - Dyspnoea [Recovered/Resolved]
  - Pyrexia [Unknown]
  - Decreased appetite [Unknown]

NARRATIVE: CASE EVENT DATE: 20160419
